FAERS Safety Report 5374156-0 (Version None)
Quarter: 2007Q2

REPORT INFORMATION
  Report Type: 
  Country: None (occurrence: None)
  Receive Date: 20070627
  Receipt Date: 20061204
  Transmission Date: 20071010
  Serious: Yes (Death)
  Sender: FDA-Public Use
  Company Number: 474049

PATIENT
  Age: 62 Year
  Sex: Female

DRUGS (2)
  1. XELODA [Suspect]
     Indication: DRUG USE FOR UNKNOWN INDICATION
     Dosage: ORAL
     Route: 048
     Dates: start: 20060519, end: 20060522
  2. CHEMOTHERAPY DRUGS NOS (ANTINEOPLASTIC AGENT NOS) [Concomitant]

REACTIONS (1)
  - MYOCARDIAL INFARCTION [None]
